FAERS Safety Report 9734769 (Version 2)
Quarter: 2013Q4

REPORT INFORMATION
  Report Type: Spontaneous
  Country: JP (occurrence: JP)
  Receive Date: 20131206
  Receipt Date: 20131206
  Transmission Date: 20140711
  Serious: No
  Sender: FDA-Public Use
  Company Number: JP-JNJFOC-20131101388

PATIENT
  Age: 57 Year
  Sex: Male

DRUGS (3)
  1. DUROTEP MT [Suspect]
     Indication: PRODUCT USED FOR UNKNOWN INDICATION
     Route: 062
  2. DUROTEP MT [Suspect]
     Indication: PRODUCT USED FOR UNKNOWN INDICATION
     Route: 062
  3. DUROTEP MT [Suspect]
     Indication: PRODUCT USED FOR UNKNOWN INDICATION
     Route: 062

REACTIONS (3)
  - Vitreous floaters [Recovered/Resolved]
  - Treatment noncompliance [Unknown]
  - Pain [Unknown]
